FAERS Safety Report 18543009 (Version 1)
Quarter: 2020Q4

REPORT INFORMATION
  Report Type: Spontaneous
  Country: IT (occurrence: IT)
  Receive Date: 20201125
  Receipt Date: 20201125
  Transmission Date: 20210114
  Serious: Yes (Hospitalization, Other)
  Sender: FDA-Public Use
  Company Number: IT-AUROBINDO-AUR-APL-2020-057542

PATIENT
  Age: 5 Year
  Sex: Male

DRUGS (2)
  1. AMPICILLIN;SULBACTAM [Concomitant]
     Active Substance: AMPICILLIN SODIUM\SULBACTAM SODIUM
     Indication: PRODUCT USED FOR UNKNOWN INDICATION
     Dosage: 150 MILLIGRAM/KILOGRAM
     Route: 065
  2. PARACETAMOL [Suspect]
     Active Substance: ACETAMINOPHEN
     Indication: PRODUCT USED FOR UNKNOWN INDICATION
     Dosage: UNK
     Route: 065

REACTIONS (5)
  - Strawberry tongue [Unknown]
  - Acute generalised exanthematous pustulosis [Unknown]
  - Pharyngeal erythema [Unknown]
  - Cheilitis [Unknown]
  - Erythema [Unknown]
